FAERS Safety Report 19364712 (Version 14)
Quarter: 2023Q1

REPORT INFORMATION
  Report Type: Spontaneous
  Country: BR (occurrence: BR)
  Receive Date: 20210603
  Receipt Date: 20230329
  Transmission Date: 20230418
  Serious: Yes (Life-Threatening, Hospitalization, Other)
  Sender: FDA-Public Use
  Company Number: BR-GLAXOSMITHKLINE-BR2021AMR094590

PATIENT

DRUGS (4)
  1. NUCALA [Suspect]
     Active Substance: MEPOLIZUMAB
     Indication: Asthma
     Dosage: 100 MG
     Dates: start: 20210225
  2. CYCLOBENZAPRINE HYDROCHLORIDE [Suspect]
     Active Substance: CYCLOBENZAPRINE HYDROCHLORIDE
     Indication: Spinal pain
     Dosage: 10 MG, BID
  3. ACETAMINOPHEN\CAFFEINE\CARISOPRODOL\DICLOFENAC SODIUM [Suspect]
     Active Substance: ACETAMINOPHEN\CAFFEINE\CARISOPRODOL\DICLOFENAC SODIUM
     Indication: Spinal pain
     Dosage: UNK, TID
  4. COVID-19 VACCINE NOS [Suspect]
     Active Substance: COVID-19 VACCINE NOS
     Indication: COVID-19 prophylaxis
     Dosage: UNK
     Dates: start: 20210527

REACTIONS (24)
  - Diabetic coma [Recovered/Resolved]
  - Hospitalisation [Not Recovered/Not Resolved]
  - Asthmatic crisis [Not Recovered/Not Resolved]
  - Diabetic metabolic decompensation [Not Recovered/Not Resolved]
  - Anaesthetic complication neurological [Unknown]
  - Haemorrhage [Not Recovered/Not Resolved]
  - Urinary tract infection [Not Recovered/Not Resolved]
  - Fatigue [Not Recovered/Not Resolved]
  - Dyspnoea [Not Recovered/Not Resolved]
  - Back disorder [Unknown]
  - Musculoskeletal stiffness [Unknown]
  - Gait inability [Unknown]
  - Spinal pain [Not Recovered/Not Resolved]
  - Blood glucose increased [Recovered/Resolved]
  - Blood glucose decreased [Not Recovered/Not Resolved]
  - Malaise [Unknown]
  - Cough [Not Recovered/Not Resolved]
  - Leiomyoma [Not Recovered/Not Resolved]
  - Uterine leiomyoma [Not Recovered/Not Resolved]
  - Biopsy endometrium abnormal [Unknown]
  - Headache [Unknown]
  - Therapy interrupted [Not Recovered/Not Resolved]
  - Inappropriate schedule of product administration [Not Recovered/Not Resolved]
  - Product dose omission issue [Unknown]

NARRATIVE: CASE EVENT DATE: 20210401
